FAERS Safety Report 8242617-2 (Version None)
Quarter: 2012Q1

REPORT INFORMATION
  Report Type: 
  Country: None (occurrence: None)
  Receive Date: 20120329
  Receipt Date: 20120321
  Transmission Date: 20120608
  Serious: Yes (Other)
  Sender: FDA-Public Use
  Company Number: PHFR2012GB001846

PATIENT
  Sex: Male

DRUGS (1)
  1. CLOZARIL [Suspect]
     Indication: SCHIZOPHRENIA
     Dosage: 300 MG, (125MG AM AND 175MG ON NIGHT)
     Route: 048
     Dates: start: 20111220

REACTIONS (4)
  - AUTISM SPECTRUM DISORDER [None]
  - SEDATION [None]
  - HEART RATE INCREASED [None]
  - SALIVARY HYPERSECRETION [None]
